FAERS Safety Report 5024972-X (Version None)
Quarter: 2006Q2

REPORT INFORMATION
  Report Type: 
  Country: None (occurrence: None)
  Receive Date: 20060607
  Receipt Date: 20060603
  Transmission Date: 20061013
  Serious: Yes (Death)
  Sender: FDA-Public Use
  Company Number: 223668

PATIENT
  Age: 70 Year
  Sex: Male

DRUGS (1)
  1. ACTIVASE [Suspect]
     Indication: ISCHAEMIC STROKE
     Dosage: 57 MG, SINGLE, INTRAVENOUS
     Route: 042
     Dates: start: 20060315, end: 20060315

REACTIONS (3)
  - AORTIC ANEURYSM RUPTURE [None]
  - DISEASE PROGRESSION [None]
  - GENERAL PHYSICAL HEALTH DETERIORATION [None]
